FAERS Safety Report 7852329-2 (Version None)
Quarter: 2011Q4

REPORT INFORMATION
  Report Type: 
  Country: None (occurrence: None)
  Receive Date: 20111026
  Receipt Date: 20111017
  Transmission Date: 20120403
  Serious: Yes (Hospitalization, Other)
  Sender: FDA-Public Use
  Company Number: US-US-EMD SERONO, INC.-7090315

PATIENT
  Sex: Female

DRUGS (2)
  1. UNSPECIFIED MEDICATION FOR DIABETES [Concomitant]
     Indication: DIABETES MELLITUS
  2. REBIF [Suspect]
     Indication: MULTIPLE SCLEROSIS
     Route: 058
     Dates: start: 20110318

REACTIONS (3)
  - LOSS OF CONSCIOUSNESS [None]
  - CORONARY ARTERY STENOSIS [None]
  - DEMENTIA [None]
